FAERS Safety Report 9191428 (Version 1)
Quarter: 2013Q1

REPORT INFORMATION
  Report Type: Spontaneous
  Country: AR (occurrence: AR)
  Receive Date: 20130326
  Receipt Date: 20130326
  Transmission Date: 20140127
  Serious: Yes (Hospitalization)
  Sender: FDA-Public Use
  Company Number: AR-PFIZER INC-2013093042

PATIENT
  Sex: Male

DRUGS (1)
  1. XYNTHA [Suspect]
     Indication: FACTOR VIII DEFICIENCY
     Dosage: 500 IU, 2X/WEEK
     Dates: start: 20130108

REACTIONS (1)
  - Arthropathy [Recovered/Resolved]
